FAERS Safety Report 11375028 (Version 2)
Quarter: 2015Q3

REPORT INFORMATION
  Report Type: Spontaneous
  Country: US (occurrence: US)
  Receive Date: 20150813
  Receipt Date: 20150827
  Transmission Date: 20151125
  Serious: Yes (Hospitalization, Other)
  Sender: FDA-Public Use
  Company Number: US-ASTRAZENECA-2015SE76240

PATIENT
  Age: 68 Year
  Sex: Female
  Weight: 88 kg

DRUGS (16)
  1. LISINOPRIL. [Suspect]
     Active Substance: LISINOPRIL
     Route: 048
  2. FLAGYL [Suspect]
     Active Substance: METRONIDAZOLE\METRONIDAZOLE HYDROCHLORIDE
     Route: 065
  3. IBUPROFEN. [Concomitant]
     Active Substance: IBUPROFEN
     Indication: PAIN
  4. DOXYCYCLINE. [Suspect]
     Active Substance: DOXYCYCLINE
     Route: 065
  5. PROZAC [Concomitant]
     Active Substance: FLUOXETINE HYDROCHLORIDE
     Indication: DEPRESSION
  6. ALBUTEROL SULFATE. [Concomitant]
     Active Substance: ALBUTEROL SULFATE
     Dosage: EVERY FOUR HOURS
  7. FLONASE [Concomitant]
     Active Substance: FLUTICASONE PROPIONATE
  8. VALIUM [Concomitant]
     Active Substance: DIAZEPAM
     Dosage: INCREASED
  9. ALBUTEROL. [Concomitant]
     Active Substance: ALBUTEROL
  10. SYMBICORT [Suspect]
     Active Substance: BUDESONIDE\FORMOTEROL FUMARATE DIHYDRATE
     Indication: ASTHMA
     Dosage: 2 PUFFS, TWO TIMES A DAY
     Route: 055
  11. VALIUM [Concomitant]
     Active Substance: DIAZEPAM
  12. HYDROCODONE [Concomitant]
     Active Substance: HYDROCODONE
     Indication: PAIN
  13. ALBUTEROL SULFATE. [Concomitant]
     Active Substance: ALBUTEROL SULFATE
     Dosage: THREE TIMES A DAY
  14. ATORVASTATIN [Concomitant]
     Active Substance: ATORVASTATIN
     Indication: BLOOD CHOLESTEROL INCREASED
  15. ALBUTEROL SULFATE. [Concomitant]
     Active Substance: ALBUTEROL SULFATE
     Dosage: TWO TIMES A DAY
  16. VITAMIN D [Concomitant]
     Active Substance: CHOLECALCIFEROL
     Indication: SUPPLEMENTATION THERAPY

REACTIONS (10)
  - Pneumonia [Recovering/Resolving]
  - Depression [Unknown]
  - Chest pain [Recovering/Resolving]
  - Abdominal discomfort [Unknown]
  - Lung neoplasm malignant [Not Recovered/Not Resolved]
  - Back pain [Unknown]
  - Swelling face [Recovered/Resolved]
  - Hypotension [Recovering/Resolving]
  - Bronchitis [Recovered/Resolved]
  - Drug hypersensitivity [Unknown]

NARRATIVE: CASE EVENT DATE: 2015
